FAERS Safety Report 15612032 (Version 3)
Quarter: 2019Q2

REPORT INFORMATION
  Report Type: Spontaneous
  Country: US (occurrence: US)
  Receive Date: 20181113
  Receipt Date: 20190624
  Transmission Date: 20190711
  Serious: Yes (Other)
  Sender: FDA-Public Use
  Company Number: US-SA-2018SA310613

PATIENT
  Age: 47 Year
  Sex: Female
  Weight: 77 kg

DRUGS (5)
  1. LORCET [LORATADINE] [Concomitant]
     Dosage: UNK
     Dates: start: 1997
  2. TAXOTERE [Suspect]
     Active Substance: DOCETAXEL
     Indication: BREAST CANCER FEMALE
     Dosage: 135 MG, Q3W
     Route: 042
     Dates: start: 20070307, end: 20070307
  3. SKELAXIN [CLONIXIN LYSINATE] [Concomitant]
     Active Substance: CLONIXIN LYSINE
     Dosage: UNK
  4. NEURONTIN [Concomitant]
     Active Substance: GABAPENTIN
     Dosage: UNK
  5. TAXOTERE [Suspect]
     Active Substance: DOCETAXEL
     Dosage: 135 MG, Q3W
     Route: 042
     Dates: start: 20070509, end: 20070509

REACTIONS (1)
  - Alopecia [Recovering/Resolving]

NARRATIVE: CASE EVENT DATE: 20071101
